FAERS Safety Report 6759239-2 (Version None)
Quarter: 2010Q2

REPORT INFORMATION
  Report Type: 
  Country: None (occurrence: None)
  Receive Date: 20100602
  Receipt Date: 20100515
  Transmission Date: 20101027
  Serious: Yes (Hospitalization)
  Sender: FDA-Public Use
  Company Number: 2010AP001036

PATIENT
  Age: 76 Year
  Sex: Male

DRUGS (2)
  1. PAROXETINE HYDROCHLORIDE [Suspect]
     Indication: DEPRESSION
  2. MILNACIPRAN [Suspect]
     Indication: FIBROMYALGIA

REACTIONS (3)
  - DRUG INTERACTION [None]
  - GASTROINTESTINAL SOUNDS ABNORMAL [None]
  - SEROTONIN SYNDROME [None]
